FAERS Safety Report 10750190 (Version 1)
Quarter: 2015Q1

REPORT INFORMATION
  Report Type: Report from Study
  Country: MX (occurrence: MX)
  Receive Date: 20150129
  Receipt Date: 20150129
  Transmission Date: 20150721
  Serious: Yes (Death)
  Sender: FDA-Public Use
  Company Number: PHHY2015MX009392

PATIENT
  Age: 49 Year
  Sex: Female

DRUGS (6)
  1. EXJADE [Suspect]
     Active Substance: DEFERASIROX
     Indication: MYELODYSPLASTIC SYNDROME
     Dosage: 1250 MG, QD (EVERY 24 HRS)
     Route: 065
     Dates: start: 20150115
  2. CYCLOSPORINE. [Concomitant]
     Active Substance: CYCLOSPORINE
     Indication: MYELODYSPLASTIC SYNDROME
     Dosage: 100 MG, Q12H
     Route: 048
  3. DANAZOL. [Concomitant]
     Active Substance: DANAZOL
     Indication: MYELODYSPLASTIC SYNDROME
     Dosage: 100 MG, Q12H
     Route: 048
  4. DEFLAZACORT [Concomitant]
     Active Substance: DEFLAZACORT
     Indication: MYELODYSPLASTIC SYNDROME
     Dosage: 6 MG, QD (EVERY 24 HRS)
     Route: 048
  5. THALIDOMIDE [Concomitant]
     Active Substance: THALIDOMIDE
     Indication: MYELODYSPLASTIC SYNDROME
     Dosage: 100 MG, QD (EVERY 24 HRS)
     Route: 048
  6. CHLORMADINONE [Concomitant]
     Active Substance: CHLORMADINONE
     Indication: MYELODYSPLASTIC SYNDROME
     Dosage: 2 MG, QD (EVERY 24 HRS)
     Route: 048

REACTIONS (5)
  - Memory impairment [Unknown]
  - Diarrhoea [Unknown]
  - Feeling abnormal [Unknown]
  - Acute myocardial infarction [Fatal]
  - Abdominal pain upper [Recovering/Resolving]

NARRATIVE: CASE EVENT DATE: 20150122
